FAERS Safety Report 15292641 (Version 2)
Quarter: 2018Q3

REPORT INFORMATION
  Report Type: Report from Study
  Country: DE (occurrence: DE)
  Receive Date: 20180819
  Receipt Date: 20180921
  Transmission Date: 20181010
  Serious: Yes (Hospitalization, Other)
  Sender: FDA-Public Use
  Company Number: DE-TEVA-2018-DE-942688

PATIENT
  Age: 52 Year
  Sex: Male

DRUGS (10)
  1. DIAZEPAM. [Suspect]
     Active Substance: DIAZEPAM
     Dosage: 20 MILLIGRAM DAILY; 20 MG, UNK
     Route: 048
     Dates: start: 20170801, end: 20170918
  2. CIATYL Z [Suspect]
     Active Substance: ZUCLOPENTHIXOL ACETATE
     Dosage: 30 MILLIGRAM DAILY; 30 MG, UNK
     Route: 048
     Dates: start: 20170816, end: 20170821
  3. SIMVASTATIN. [Concomitant]
     Active Substance: SIMVASTATIN
     Dosage: 20 MILLIGRAM DAILY; 20 MG, UNK
     Route: 048
     Dates: start: 20170622
  4. CIATYL Z [Suspect]
     Active Substance: ZUCLOPENTHIXOL ACETATE
     Dosage: 45 MILLIGRAM DAILY; 45 MG, UNK
     Route: 065
     Dates: start: 20170802, end: 20170815
  5. PENICILLIN [Concomitant]
     Active Substance: PENICILLIN
     Route: 048
     Dates: start: 20170804, end: 20170812
  6. AMISULPRID [Suspect]
     Active Substance: AMISULPRIDE
     Dosage: 300 MILLIGRAM DAILY; UNK
     Route: 065
     Dates: start: 20130301
  7. ERGENYL [Suspect]
     Active Substance: VALPROIC ACID
     Dosage: 2000 MILLIGRAM DAILY; 2000 MG, UNK
     Route: 048
     Dates: start: 20130301
  8. RAMIPRIL. [Concomitant]
     Active Substance: RAMIPRIL
     Dosage: 2.5 MILLIGRAM DAILY; 2.5 MG, UNK
     Route: 048
     Dates: start: 20170622
  9. CIATYL Z [Suspect]
     Active Substance: ZUCLOPENTHIXOL ACETATE
     Dosage: 15 MILLIGRAM DAILY; 15 MG, UNK
     Route: 048
     Dates: start: 20170822, end: 20170828
  10. ASPIRIN. [Concomitant]
     Active Substance: ASPIRIN
     Dosage: 100 MILLIGRAM DAILY; 100 MG, UNK
     Route: 048
     Dates: start: 20170622

REACTIONS (2)
  - Ataxia [Recovered/Resolved]
  - Fall [Recovering/Resolving]

NARRATIVE: CASE EVENT DATE: 20170812
